FAERS Safety Report 25712518 (Version 1)
Quarter: 2025Q3

REPORT INFORMATION
  Report Type: Spontaneous
  Country: EU (occurrence: EU)
  Receive Date: 20250821
  Receipt Date: 20250821
  Transmission Date: 20251021
  Serious: Yes (Other)
  Sender: DAIICHI
  Company Number: None

PATIENT
  Age: 62 Year
  Sex: Female
  Weight: 48.5 kg

DRUGS (4)
  1. EDOXABAN TOSYLATE [Suspect]
     Active Substance: EDOXABAN TOSYLATE
     Indication: Atrial fibrillation
     Route: 048
     Dates: start: 20250108, end: 20250401
  2. EDOXABAN TOSYLATE [Suspect]
     Active Substance: EDOXABAN TOSYLATE
     Indication: Transient ischaemic attack
  3. LANOXIN [Suspect]
     Active Substance: DIGOXIN
     Indication: Atrial fibrillation
     Dosage: 0.25 MG, QD (ONCE A DAY), MEDICATION PRESCRIBED BY A DOCTOR: YES
     Route: 048
     Dates: start: 20250109, end: 20250513
  4. PANTOPRAZOLE [Concomitant]
     Active Substance: PANTOPRAZOLE
     Indication: Dyspepsia
     Route: 048
     Dates: start: 20170101

REACTIONS (14)
  - Atrial fibrillation [Not Recovered/Not Resolved]
  - Renal impairment [Unknown]
  - Alopecia [Recovered/Resolved]
  - Oedema peripheral [Recovered/Resolved]
  - Dyspnoea [Not Recovered/Not Resolved]
  - Chest discomfort [Not Recovered/Not Resolved]
  - Abdominal discomfort [Not Recovered/Not Resolved]
  - Apathy [Not Recovered/Not Resolved]
  - Asthenia [Not Recovered/Not Resolved]
  - Madarosis [Recovered/Resolved]
  - Increased upper airway secretion [Not Recovered/Not Resolved]
  - Myalgia [Recovering/Resolving]
  - Haematochezia [Recovered/Resolved]
  - Epistaxis [Recovered/Resolved]
